FAERS Safety Report 10534675 (Version 1)
Quarter: 2014Q4

REPORT INFORMATION
  Report Type: Spontaneous
  Country: CH (occurrence: CH)
  Receive Date: 20141022
  Receipt Date: 20141022
  Transmission Date: 20150529
  Serious: Yes (Other)
  Sender: FDA-Public Use
  Company Number: CH-009507513-1410CHE008918

PATIENT
  Age: 22 Year
  Sex: Female

DRUGS (5)
  1. PROPOFOL. [Suspect]
     Active Substance: PROPOFOL
     Indication: INDUCTION OF ANAESTHESIA
     Dosage: 200 MG, ONCE
     Route: 042
     Dates: start: 20140804, end: 20140804
  2. FENTANYL. [Suspect]
     Active Substance: FENTANYL
     Indication: INDUCTION AND MAINTENANCE OF ANAESTHESIA
     Dosage: 1.05 MG, ONCE, TOTAL DAILY DOSE 1.15 MG
     Route: 042
     Dates: start: 20140804, end: 20140804
  3. ESMERON [Suspect]
     Active Substance: ROCURONIUM BROMIDE
     Indication: INDUCTION AND MAINTENANCE OF ANAESTHESIA
     Dosage: 30 MG, ONCE, TOTAL DAILY DOSAGE: 50 MG
     Route: 042
     Dates: start: 20140804, end: 20140804
  4. FENTANYL. [Suspect]
     Active Substance: FENTANYL
     Indication: INDUCTION AND MAINTENANCE OF ANAESTHESIA
     Dosage: 0.1 MG, ONCE, TOTAL DAILY DOSE 1.15 MG,
     Route: 042
     Dates: start: 20140804, end: 20140804
  5. ESMERON [Suspect]
     Active Substance: ROCURONIUM BROMIDE
     Indication: INDUCTION AND MAINTENANCE OF ANAESTHESIA
     Dosage: 20 MG, ONCE, TOTAL DAILY DOSAGE: 50 MG
     Route: 042
     Dates: start: 20140804, end: 20140804

REACTIONS (3)
  - Dermatitis allergic [Recovered/Resolved]
  - Procedural hypotension [Recovered/Resolved]
  - Hypersensitivity [Recovered/Resolved]

NARRATIVE: CASE EVENT DATE: 20140804
